FAERS Safety Report 5932452-X (Version None)
Quarter: 2008Q4

REPORT INFORMATION
  Report Type: 
  Country: None (occurrence: None)
  Receive Date: 20081023
  Receipt Date: 20081010
  Transmission Date: 20090506
  Serious: Yes (Other)
  Sender: FDA-Public Use
  Company Number: B0542381A

PATIENT
  Age: 9 Year
  Sex: Male

DRUGS (4)
  1. BUSULPHAN (FORMULATION UNKNOWN) (GENERIC) (BUSULFAN) [Suspect]
     Indication: BONE MARROW TRANSPLANT
     Dosage: .8 MG/KG / FOUR TIMES PER DAY / INTRAV
     Route: 042
     Dates: start: 20070719, end: 20070722
  2. MELPHALAN (FORMULATION UNKNOWN) (GENERIC) (MELPHALAN) [Suspect]
     Indication: BONE MARROW TRANSPLANT
     Dosage: 140 MG/M2 / SINGLE DOSE / INTRAVENOUS
     Route: 042
  3. CYCLOPHOSPHAMIDE [Suspect]
     Indication: BONE MARROW TRANSPLANT
     Dosage: 60 MG/KG / SINGLE DOSE / INTRAVENOUS
     Route: 042
  4. CYCLOSPORINE [Concomitant]

REACTIONS (5)
  - CYSTITIS HAEMORRHAGIC [None]
  - GALLBLADDER DISORDER [None]
  - RENAL FAILURE [None]
  - THROMBOSIS [None]
  - TUBULOINTERSTITIAL NEPHRITIS [None]
